FAERS Safety Report 13527856 (Version 1)
Quarter: 2017Q2

REPORT INFORMATION
  Report Type: Spontaneous
  Country: US (occurrence: US)
  Receive Date: 20170509
  Receipt Date: 20170509
  Transmission Date: 20170830
  Serious: No
  Sender: FDA-Public Use
  Company Number: US-PFIZER INC-2017197531

PATIENT
  Sex: Male

DRUGS (2)
  1. LYRICA [Suspect]
     Active Substance: PREGABALIN
     Dosage: 100 MG, UNK
  2. LYRICA [Suspect]
     Active Substance: PREGABALIN
     Dosage: 200 MG, DAILY

REACTIONS (9)
  - Peripheral swelling [Unknown]
  - Joint swelling [Unknown]
  - Tenderness [Unknown]
  - Musculoskeletal disorder [Unknown]
  - Feeling hot [Unknown]
  - Sensory loss [Unknown]
  - Disturbance in attention [Recovering/Resolving]
  - Pain [Unknown]
  - Movement disorder [Unknown]
